FAERS Safety Report 9168679 (Version 1)
Quarter: 2013Q1

REPORT INFORMATION
  Report Type: Spontaneous
  Country: CA (occurrence: None)
  Receive Date: 20130308
  Receipt Date: 20130308
  Transmission Date: 20140127
  Serious: Yes (Other)
  Sender: FDA-Public Use
  Company Number: ACO_34670_2013

PATIENT
  Age: 72 Year
  Sex: Female

DRUGS (1)
  1. FAMPYRA (DALFAMPRIDINE) TABLET, 10MG [Suspect]
     Route: 048
     Dates: start: 20121206, end: 20130109

REACTIONS (3)
  - Neoplasm malignant [None]
  - Dysphagia [None]
  - Speech disorder [None]
